FAERS Safety Report 8499073-9 (Version None)
Quarter: 2012Q3

REPORT INFORMATION
  Report Type: 
  Country: None (occurrence: None)
  Receive Date: 20120710
  Receipt Date: 20120628
  Transmission Date: 20120928
  Serious: Yes (Other)
  Sender: FDA-Public Use
  Company Number: AR-AMGEN-ARGSP2012041101

PATIENT
  Age: 37 Year
  Sex: Female

DRUGS (4)
  1. NURIBAN A                          /00653001/ [Concomitant]
     Dosage: UNK
  2. ENBREL [Suspect]
     Indication: RHEUMATOID ARTHRITIS
     Dosage: 25 MG, 2X/WEEK
     Route: 058
     Dates: start: 20050311
  3. MICARDIS [Concomitant]
     Dosage: UNK
  4. ALPRAZOLAM [Concomitant]
     Dosage: UNK

REACTIONS (5)
  - IMMUNOSUPPRESSION [None]
  - EAR INFECTION [None]
  - INFECTION [None]
  - INFLUENZA [None]
  - ERYSIPELAS [None]
